FAERS Safety Report 20264584 (Version 5)
Quarter: 2022Q1

REPORT INFORMATION
  Report Type: Spontaneous
  Country: US (occurrence: US)
  Receive Date: 20211231
  Receipt Date: 20220302
  Transmission Date: 20220423
  Serious: Yes (Other)
  Sender: FDA-Public Use
  Company Number: US-UNITED THERAPEUTICS-UNT-2021-026678

PATIENT
  Sex: Male
  Weight: 77.098 kg

DRUGS (7)
  1. REMODULIN [Suspect]
     Active Substance: TREPROSTINIL
     Indication: Pulmonary arterial hypertension
     Dosage: UNK, CONTINUING
     Route: 058
     Dates: start: 20131223
  2. REMODULIN [Suspect]
     Active Substance: TREPROSTINIL
     Dosage: 0.0422 ?G/KG, CONTINUING
     Route: 058
  3. REMODULIN [Suspect]
     Active Substance: TREPROSTINIL
     Dosage: 0.0506 ?G/KG, CONTINUING
     Route: 058
  4. REMODULIN [Suspect]
     Active Substance: TREPROSTINIL
     Dosage: 0.0464 ?G/KG, CONTINUING
     Route: 058
  5. OPSUMIT [Suspect]
     Active Substance: MACITENTAN
     Indication: Pulmonary arterial hypertension
     Dosage: 10 MG, QD
     Route: 048
  6. TADALAFIL [Concomitant]
     Active Substance: TADALAFIL
     Indication: Product used for unknown indication
     Dosage: UNK
     Route: 065
  7. ELIQUIS [Concomitant]
     Active Substance: APIXABAN
     Indication: Product used for unknown indication
     Dosage: UNK
     Route: 065

REACTIONS (15)
  - Atrial fibrillation [Unknown]
  - Heart rate irregular [Unknown]
  - Feeling abnormal [Unknown]
  - Infusion site infection [Unknown]
  - Infusion site pain [Not Recovered/Not Resolved]
  - Drug intolerance [Unknown]
  - Condition aggravated [Unknown]
  - Rash [Unknown]
  - Infusion site rash [Recovering/Resolving]
  - General physical health deterioration [Unknown]
  - Infusion site swelling [Unknown]
  - Infusion site erythema [Unknown]
  - Nausea [Unknown]
  - Device programming error [Unknown]
  - Incorrect dose administered [Unknown]
